FAERS Safety Report 4776140-4 (Version None)
Quarter: 2005Q3

REPORT INFORMATION
  Report Type: 
  Country: None (occurrence: None)
  Receive Date: 20050914
  Receipt Date: 20050219
  Transmission Date: 20060218
  Serious: Yes (Death, Hospitalization)
  Sender: FDA-Public Use
  Company Number: 163-20785-05020489

PATIENT
  Age: 83 Year
  Sex: Male

DRUGS (11)
  1. THALOMID [Suspect]
     Indication: MULTIPLE MYELOMA
     Dosage: 100 MG, QHS, ORAL
     Route: 048
     Dates: start: 20050121, end: 20050101
  2. DECADRON [Suspect]
     Indication: MULTIPLE MYELOMA
     Dosage: 40 MG, DAILY X4 DAYS Q28 DAYS, UNKNOWN
     Dates: start: 20050101, end: 20050101
  3. FUROSEMIDE [Concomitant]
  4. COREG [Concomitant]
  5. COUMADIN [Concomitant]
  6. DIGOXIN (DIGOXN) [Concomitant]
  7. GLIPIZIDE [Concomitant]
  8. NITRO-DUR [Concomitant]
  9. PROTONIX [Concomitant]
  10. ACCUPRIL [Concomitant]
  11. DARVOCET [Concomitant]

REACTIONS (10)
  - ASCITES [None]
  - DEATH [None]
  - DIARRHOEA [None]
  - DISEASE PROGRESSION [None]
  - LIVER FUNCTION TEST ABNORMAL [None]
  - METASTASES TO LIVER [None]
  - NAUSEA [None]
  - PLEURAL EFFUSION [None]
  - PLEURAL FIBROSIS [None]
  - VOMITING [None]
